FAERS Safety Report 4575909-9 (Version None)
Quarter: 2005Q1

REPORT INFORMATION
  Report Type: 
  Country: None (occurrence: None)
  Receive Date: 20050207
  Receipt Date: 20050120
  Transmission Date: 20050727
  Serious: Yes (Death)
  Sender: FDA-Public Use
  Company Number: 2005S1000247

PATIENT
  Age: 30 Year
  Sex: Male

DRUGS (7)
  1. CLOZAPINE [Suspect]
     Indication: SCHIZOPHRENIA
     Dosage: 400 MG QHS, ORAL
     Route: 048
     Dates: start: 20020326, end: 20041201
  2. FUROSEMIDE [Concomitant]
  3. VALSARTAN [Concomitant]
  4. ATENOLOL [Concomitant]
  5. ESOMEPRAZOLE [Concomitant]
  6. SERTRALINE [Concomitant]
  7. LITHIUM [Concomitant]

REACTIONS (1)
  - CARDIAC FAILURE CONGESTIVE [None]
